FAERS Safety Report 9257240 (Version 2)
Quarter: 2013Q2

REPORT INFORMATION
  Report Type: Spontaneous
  Country: US (occurrence: US)
  Receive Date: 20130426
  Receipt Date: 20130502
  Transmission Date: 20140414
  Serious: Yes (Other)
  Sender: FDA-Public Use
  Company Number: PHEH2013US009297

PATIENT
  Age: 54 Year
  Sex: Female
  Weight: 65.77 kg

DRUGS (1)
  1. RECLAST [Suspect]
     Indication: OSTEOPOROSIS
     Dosage: 5 MG/100ML
     Route: 042
     Dates: start: 20121017

REACTIONS (6)
  - Colitis microscopic [Not Recovered/Not Resolved]
  - Abdominal pain [Recovering/Resolving]
  - Ulcer [Unknown]
  - Diarrhoea [Recovering/Resolving]
  - Gastrooesophageal reflux disease [Recovering/Resolving]
  - Erosive oesophagitis [Unknown]
